FAERS Safety Report 23463987 (Version 2)
Quarter: 2024Q1

REPORT INFORMATION
  Report Type: Spontaneous
  Country: US (occurrence: US)
  Receive Date: 20240201
  Receipt Date: 20240306
  Transmission Date: 20240410
  Serious: No
  Sender: FDA-Public Use
  Company Number: US-GSKCCFUS-Case-01907769_AE-106319

PATIENT
  Age: 37 Year
  Sex: Female

DRUGS (1)
  1. BENLYSTA [Suspect]
     Active Substance: BELIMUMAB
     Indication: Systemic lupus erythematosus
     Dosage: 200 MG, WE
     Route: 058
     Dates: start: 20231108

REACTIONS (6)
  - Pharyngitis streptococcal [Not Recovered/Not Resolved]
  - Fatigue [Recovering/Resolving]
  - Oropharyngeal pain [Not Recovered/Not Resolved]
  - Injection site urticaria [Recovering/Resolving]
  - Injection site bruising [Recovered/Resolved]
  - COVID-19 [Recovered/Resolved]

NARRATIVE: CASE EVENT DATE: 20240104
